FAERS Safety Report 10951377 (Version 2)
Quarter: 2015Q2

REPORT INFORMATION
  Report Type: Spontaneous
  Country: JP (occurrence: JP)
  Receive Date: 20150324
  Receipt Date: 20150407
  Transmission Date: 20150821
  Serious: Yes (Death, Other)
  Sender: FDA-Public Use
  Company Number: PHJP2015JP003769

PATIENT
  Sex: Male

DRUGS (1)
  1. GLIVEC [Suspect]
     Active Substance: IMATINIB MESYLATE
     Indication: GASTRIC SARCOMA
     Route: 048

REACTIONS (4)
  - Death [Fatal]
  - Product use issue [Unknown]
  - Interstitial lung disease [Unknown]
  - Febrile neutropenia [Unknown]
